FAERS Safety Report 23657679 (Version 1)
Quarter: 2024Q1

REPORT INFORMATION
  Report Type: Spontaneous
  Country: US (occurrence: None)
  Receive Date: 20240320
  Receipt Date: 20240320
  Transmission Date: 20240410
  Serious: No
  Sender: FDA-Public Use
  Company Number: None

PATIENT
  Sex: 0

DRUGS (1)
  1. MEMANTINE [Suspect]
     Active Substance: MEMANTINE

REACTIONS (1)
  - Dementia [None]

NARRATIVE: CASE EVENT DATE: 20240320
